FAERS Safety Report 5467968-6 (Version None)
Quarter: 2007Q3

REPORT INFORMATION
  Report Type: 
  Country: None (occurrence: None)
  Receive Date: 20070925
  Receipt Date: 20070925
  Transmission Date: 20080115
  Serious: No
  Sender: FDA-Public Use
  Company Number: None

PATIENT
  Sex: Female
  Weight: 68.0396 kg

DRUGS (2)
  1. ANCEF [Suspect]
     Indication: PROPHYLAXIS
     Dosage: 1 GRAM ONCE IV
     Route: 042
     Dates: start: 20070423
  2. ANCEF [Suspect]
     Indication: SURGERY
     Dosage: 1 GRAM ONCE IV
     Route: 042
     Dates: start: 20070423

REACTIONS (1)
  - ANAPHYLACTIC REACTION [None]
